FAERS Safety Report 5008284-6 (Version None)
Quarter: 2006Q1

REPORT INFORMATION
  Report Type: 
  Country: None (occurrence: None)
  Receive Date: 20060331
  Receipt Date: 20050901
  Transmission Date: 20060701
  Serious: Yes (Hospitalization)
  Sender: FDA-Public Use
  Company Number: WAES 0509USA00310

PATIENT
  Sex: 0

DRUGS (1)
  1. CANCIDAS [Suspect]
     Indication: INFECTION
     Dosage: IV
     Route: 042

REACTIONS (1)
  - HEPATIC ENZYME INCREASED [None]
